FAERS Safety Report 20001804 (Version 1)
Quarter: 2021Q4

REPORT INFORMATION
  Report Type: Spontaneous
  Country: GB (occurrence: GB)
  Receive Date: 20211027
  Receipt Date: 20211027
  Transmission Date: 20220304
  Serious: Yes (Other)
  Sender: FDA-Public Use
  Company Number: GB-LUPIN PHARMACEUTICALS INC.-2021-20729

PATIENT
  Age: 5 Year
  Sex: Male

DRUGS (2)
  1. CEFTRIAXONE [Suspect]
     Active Substance: CEFTRIAXONE
     Indication: Product used for unknown indication
     Dosage: UNK, (FIRST DOSE)
     Route: 065
     Dates: start: 202005
  2. CEFTRIAXONE [Suspect]
     Active Substance: CEFTRIAXONE
     Dosage: UNK, (SECOND DOSE)
     Route: 065
     Dates: start: 202006

REACTIONS (4)
  - Haemolysis [Unknown]
  - Haemolytic anaemia [Unknown]
  - Cardiac arrest [Unknown]
  - Pyrexia [Unknown]
